FAERS Safety Report 21892470 (Version 2)
Quarter: 2023Q1

REPORT INFORMATION
  Report Type: Report from Study
  Country: CA (occurrence: CA)
  Receive Date: 20230120
  Receipt Date: 20230314
  Transmission Date: 20230418
  Serious: Yes (Hospitalization, Other)
  Sender: FDA-Public Use
  Company Number: CA-KOREA IPSEN Pharma-2022-33957

PATIENT
  Age: 86 Year
  Sex: Male

DRUGS (22)
  1. LANREOTIDE ACETATE [Suspect]
     Active Substance: LANREOTIDE ACETATE
     Indication: Carcinoid syndrome
     Route: 058
     Dates: start: 20220527
  2. ACETAMINOPHEN [Concomitant]
     Active Substance: ACETAMINOPHEN
  3. FUROSEMIDE [Concomitant]
     Active Substance: FUROSEMIDE
  4. FERROUS GLUCONATE [Concomitant]
     Active Substance: FERROUS GLUCONATE
  5. RISEDRONATE SODIUM [Concomitant]
     Active Substance: RISEDRONATE SODIUM
  6. CALCITRIOL [Concomitant]
     Active Substance: CALCITRIOL
  7. HYDROMORPHONE HYDROCHLORIDE [Concomitant]
     Active Substance: HYDROMORPHONE HYDROCHLORIDE
  8. LANTUS SLOTAR [Concomitant]
  9. ALLOPURINOL [Concomitant]
     Active Substance: ALLOPURINOL
  10. AMLODIPINE [Concomitant]
     Active Substance: AMLODIPINE BESYLATE
  11. PANTOPRAZOLE [Concomitant]
     Active Substance: PANTOPRAZOLE
  12. PREGABALIN [Concomitant]
     Active Substance: PREGABALIN
     Dosage: 75 MG
  13. ROSUVASTATIN [Concomitant]
     Active Substance: ROSUVASTATIN
  14. CANDESARTAN [Concomitant]
     Active Substance: CANDESARTAN
  15. TAMUSOLIN [Concomitant]
  16. LINAGLIPTIN [Concomitant]
     Active Substance: LINAGLIPTIN
  17. TUMS [Concomitant]
     Active Substance: CALCIUM CARBONATE
  18. VITAMIN D3 [Concomitant]
     Active Substance: CHOLECALCIFEROL
  19. LORATADINE [Concomitant]
     Active Substance: LORATADINE
     Dosage: PRN
  20. BETADERM [Concomitant]
     Active Substance: BETAMETHASONE VALERATE
     Dosage: PRN
  21. VOLTAREN [Concomitant]
     Active Substance: DICLOFENAC SODIUM
  22. UREA [Concomitant]
     Active Substance: UREA
     Dosage: 10 PERCENT CREAM

REACTIONS (9)
  - Jugular vein thrombosis [Unknown]
  - Fall [Unknown]
  - Femur fracture [Not Recovered/Not Resolved]
  - Weight decreased [Not Recovered/Not Resolved]
  - Fall [Unknown]
  - Pain [Unknown]
  - Back pain [Recovering/Resolving]
  - Peripheral swelling [Not Recovered/Not Resolved]
  - Hypertension [Not Recovered/Not Resolved]

NARRATIVE: CASE EVENT DATE: 20221001
